FAERS Safety Report 13410842 (Version 2)
Quarter: 2017Q4

REPORT INFORMATION
  Report Type: Spontaneous
  Country: US (occurrence: US)
  Receive Date: 20170406
  Receipt Date: 20171123
  Transmission Date: 20180320
  Serious: Yes (Other)
  Sender: FDA-Public Use
  Company Number: US-JNJFOC-20170301943

PATIENT
  Sex: Male

DRUGS (10)
  1. RISPERIDONE. [Suspect]
     Active Substance: RISPERIDONE
     Indication: PRODUCT USED FOR UNKNOWN INDICATION
     Route: 065
     Dates: start: 20090320, end: 20090623
  2. RISPERDAL [Suspect]
     Active Substance: RISPERIDONE
     Indication: AGGRESSION
     Dosage: DOSE: 0.5 MG, 1 MG, 2MG
     Route: 048
     Dates: start: 20090320, end: 20090623
  3. RISPERDAL [Suspect]
     Active Substance: RISPERIDONE
     Indication: AGGRESSION
     Dosage: DOSE: 0.5 MG, 1 MG, 2MG
     Route: 048
     Dates: start: 20020826, end: 20050531
  4. RISPERDAL [Suspect]
     Active Substance: RISPERIDONE
     Indication: SCHIZOPHRENIA
     Dosage: DOSE: 0.5 MG, 1 MG, 2MG
     Route: 048
     Dates: start: 20090320, end: 20090623
  5. RISPERDAL [Suspect]
     Active Substance: RISPERIDONE
     Indication: BIPOLAR DISORDER
     Dosage: DOSE: 0.5 MG, 1 MG, 2MG
     Route: 048
     Dates: start: 20090320, end: 20090623
  6. RISPERDAL [Suspect]
     Active Substance: RISPERIDONE
     Indication: ATTENTION DEFICIT/HYPERACTIVITY DISORDER
     Dosage: DOSE: 0.5 MG, 1 MG, 2MG
     Route: 048
     Dates: start: 20020826, end: 20050531
  7. RISPERDAL [Suspect]
     Active Substance: RISPERIDONE
     Indication: BIPOLAR DISORDER
     Dosage: DOSE: 0.5 MG, 1 MG, 2MG
     Route: 048
     Dates: start: 20020826, end: 20050531
  8. RISPERDAL [Suspect]
     Active Substance: RISPERIDONE
     Indication: SCHIZOPHRENIA
     Dosage: DOSE: 0.5 MG, 1 MG, 2MG
     Route: 048
     Dates: start: 20020826, end: 20050531
  9. RISPERDAL [Suspect]
     Active Substance: RISPERIDONE
     Indication: ATTENTION DEFICIT/HYPERACTIVITY DISORDER
     Dosage: DOSE: 0.5 MG, 1 MG, 2MG
     Route: 048
     Dates: start: 20090320, end: 20090623
  10. RISPERIDONE. [Suspect]
     Active Substance: RISPERIDONE
     Indication: PRODUCT USED FOR UNKNOWN INDICATION
     Route: 065
     Dates: start: 20020826, end: 20050531

REACTIONS (2)
  - Emotional disorder [Unknown]
  - Gynaecomastia [Unknown]
